FAERS Safety Report 4274355-5 (Version None)
Quarter: 2004Q1

REPORT INFORMATION
  Report Type: 
  Country: None (occurrence: None)
  Receive Date: 20040115
  Receipt Date: 20040105
  Transmission Date: 20041129
  Serious: Yes (Hospitalization)
  Sender: FDA-Public Use
  Company Number: K200400007

PATIENT
  Age: 24 Year
  Sex: Male

DRUGS (4)
  1. KEMADRIN [Suspect]
     Dosage: 5MG, QD
  2. DIAZEPAM (DIAZEPAM) 20 MG [Suspect]
     Dosage: 20 MG, QD
  3. CITALOPRAM (CITALOPRAM ) 60 MG [Suspect]
     Dosage: 60 MG, QD
  4. CLOZAPINE (CLOZAPINE) 400 MG [Suspect]
     Indication: SCHIZOPHRENIA
     Dosage: 400 MG, QD
     Dates: start: 20031113

REACTIONS (3)
  - ELECTROCARDIOGRAM QT PROLONGED [None]
  - MULTIPLE DRUG OVERDOSE [None]
  - SOMNOLENCE [None]
